FAERS Safety Report 23327394 (Version 1)
Quarter: 2023Q4

REPORT INFORMATION
  Report Type: Spontaneous
  Country: GB (occurrence: GB)
  Receive Date: 20231221
  Receipt Date: 20231221
  Transmission Date: 20240109
  Serious: Yes (Other)
  Sender: FDA-Public Use
  Company Number: None

PATIENT
  Age: 63 Year
  Weight: 131 kg

DRUGS (16)
  1. TRIMETHOPRIM [Suspect]
     Active Substance: TRIMETHOPRIM
     Indication: Ill-defined disorder
     Dosage: TAKE ONE TWICE DAILY FOR 3 DAYS, TO TREAT URINE
     Route: 065
     Dates: start: 20231129, end: 20231206
  2. TRIMETHOPRIM [Suspect]
     Active Substance: TRIMETHOPRIM
     Indication: Ill-defined disorder
     Dosage: 100MG/5ML
     Route: 065
     Dates: start: 20231204
  3. PAROXETINE [Concomitant]
     Active Substance: PAROXETINE
     Indication: Ill-defined disorder
     Dosage: TAKE ONE IN THE MORNING
     Dates: start: 20230814
  4. CALCIUM CARBONATE\CHOLECALCIFEROL [Concomitant]
     Active Substance: CALCIUM CARBONATE\CHOLECALCIFEROL
     Indication: Ill-defined disorder
     Dosage: TAKE ONE TWICE DAILY
     Dates: start: 20230814
  5. LETROZOLE [Concomitant]
     Active Substance: LETROZOLE
     Indication: Ill-defined disorder
     Dosage: TAKE ONE ONCE DAILY
     Dates: start: 20230814
  6. AMISULPRIDE [Concomitant]
     Active Substance: AMISULPRIDE
     Indication: Ill-defined disorder
     Dosage: ONE TABLET TO BE TAKEN EACH MORNING
     Dates: start: 20230814
  7. PROCYCLIDINE [Concomitant]
     Active Substance: PROCYCLIDINE
     Indication: Ill-defined disorder
     Dosage: TIME INTERVAL: 0.33333333 DAYS: ONE, 3 TIMES A DAY
     Dates: start: 20230814
  8. AMLODIPINE [Concomitant]
     Active Substance: AMLODIPINE BESYLATE
     Indication: Ill-defined disorder
     Dosage: TAKE ONE DAILY
     Dates: start: 20230814
  9. CHLORPROMAZINE [Concomitant]
     Active Substance: CHLORPROMAZINE
     Indication: Ill-defined disorder
     Dosage: TAKE TWO AT NIGHT WHEN REQUIRED
     Dates: start: 20230814
  10. LISINOPRIL [Concomitant]
     Active Substance: LISINOPRIL
     Indication: Ill-defined disorder
     Dosage: TAKE ONE DAILY
     Dates: start: 20230814
  11. DOXAZOSIN [Concomitant]
     Active Substance: DOXAZOSIN MESYLATE
     Indication: Ill-defined disorder
     Dosage: 3 EVERY MORNING
     Dates: start: 20230814
  12. SNO TEARS [Concomitant]
     Indication: Ill-defined disorder
     Dosage: USE AS NEEDED
     Dates: start: 20230814
  13. ACETAMINOPHEN\CODEINE PHOSPHATE [Concomitant]
     Active Substance: ACETAMINOPHEN\CODEINE PHOSPHATE
     Indication: Ill-defined disorder
     Dosage: TAKE ONE OR TWO TABLETS UPTO FOUR TIMES DAILY F
     Dates: start: 20231009, end: 20231021
  14. ALLOPURINOL [Concomitant]
     Active Substance: ALLOPURINOL
     Indication: Ill-defined disorder
     Dosage: 1 TABLET TWICE A DAY
     Dates: start: 20230814
  15. NITROFURANTOIN [Concomitant]
     Active Substance: NITROFURANTOIN
     Indication: Ill-defined disorder
     Dosage: TAKE ONE TWICE DAILY
     Dates: start: 20231109, end: 20231116
  16. FOSFOMYCIN [Concomitant]
     Active Substance: FOSFOMYCIN
     Indication: Ill-defined disorder
     Dosage: TAKE ONE SACHET DISSOLVED IN A GLASS OF WATER O
     Dates: start: 20231204, end: 20231205

REACTIONS (1)
  - Swelling face [Recovered/Resolved]

NARRATIVE: CASE EVENT DATE: 20231206
